FAERS Safety Report 6836433-3 (Version None)
Quarter: 2010Q3

REPORT INFORMATION
  Report Type: 
  Country: None (occurrence: None)
  Receive Date: 20100708
  Receipt Date: 20100617
  Transmission Date: 20110219
  Serious: Yes (Life-Threatening, Other)
  Sender: FDA-Public Use
  Company Number: 20100286

PATIENT
  Age: 51 Year
  Sex: Male

DRUGS (1)
  1. ONDANSETRON INJECTION, USP (4402-25) 2 MG/ML [Suspect]
     Indication: SURGERY
     Dosage: 4 MG X 2 DOSES INTRAVENOUS
     Route: 042

REACTIONS (8)
  - ARTERIOSPASM CORONARY [None]
  - ATRIAL FIBRILLATION [None]
  - BLOOD PRESSURE SYSTOLIC DECREASED [None]
  - CHEST PAIN [None]
  - ELECTROCARDIOGRAM ST SEGMENT ELEVATION [None]
  - HYPERHIDROSIS [None]
  - NAUSEA [None]
  - VOMITING [None]
